FAERS Safety Report 25534155 (Version 1)
Quarter: 2025Q3

REPORT INFORMATION
  Report Type: Spontaneous
  Country: US (occurrence: US)
  Receive Date: 20250709
  Receipt Date: 20250709
  Transmission Date: 20251020
  Serious: No
  Sender: SANOFI AVENTIS
  Company Number: US-SA-2025SA192051

PATIENT
  Age: 27 Year
  Sex: Female
  Weight: 99.34 kg

DRUGS (4)
  1. TZIELD [Suspect]
     Active Substance: TEPLIZUMAB-MZWV
     Indication: Type 1 diabetes mellitus
     Route: 042
     Dates: start: 20250607, end: 20250607
  2. TZIELD [Suspect]
     Active Substance: TEPLIZUMAB-MZWV
     Route: 042
     Dates: start: 20250608, end: 20250608
  3. TZIELD [Suspect]
     Active Substance: TEPLIZUMAB-MZWV
     Dosage: 11 ML, QD
     Route: 042
     Dates: start: 20250609, end: 20250612
  4. TZIELD [Suspect]
     Active Substance: TEPLIZUMAB-MZWV
     Dosage: 22.5 ML, QD
     Route: 042
     Dates: start: 20250613, end: 20250619

REACTIONS (5)
  - Hypotension [Recovered/Resolved]
  - Dyspnoea [Recovered/Resolved]
  - Lymphocyte count decreased [Recovered/Resolved with Sequelae]
  - Rash [Recovered/Resolved with Sequelae]
  - Fatigue [Recovered/Resolved]

NARRATIVE: CASE EVENT DATE: 20250101
